FAERS Safety Report 7941009-0 (Version None)
Quarter: 2011Q4

REPORT INFORMATION
  Report Type: 
  Country: None (occurrence: None)
  Receive Date: 20111128
  Receipt Date: 20111121
  Transmission Date: 20120403
  Serious: Yes (Hospitalization)
  Sender: FDA-Public Use
  Company Number: US-JNJFOC-20110309924

PATIENT
  Sex: Male

DRUGS (4)
  1. HYDROCODONE [Concomitant]
     Indication: ILL-DEFINED DISORDER
     Route: 065
  2. LEVAQUIN [Suspect]
     Indication: SOFT TISSUE INFECTION
     Route: 048
  3. LEVAQUIN [Suspect]
     Indication: OSTEOMYELITIS
     Route: 048
  4. LEVAQUIN [Suspect]
     Indication: ANTIBIOTIC THERAPY
     Route: 048

REACTIONS (4)
  - DEPRESSION [None]
  - NEOPLASM [None]
  - STEVENS-JOHNSON SYNDROME [None]
  - TENDON PAIN [None]
